FAERS Safety Report 8981476 (Version 1)
Quarter: 2012Q4

REPORT INFORMATION
  Report Type: 
  Country: US (occurrence: US)
  Receive Date: 20121221
  Receipt Date: 20121221
  Transmission Date: 20130627
  Serious: Yes (Death, Hospitalization, Other)
  Sender: FDA-Public Use
  Company Number: US-ROXANE LABORATORIES, INC.-2012-RO-02607RO

PATIENT
  Age: 69 Year

DRUGS (3)
  1. PREDNISONE [Suspect]
     Indication: MULTIPLE MYELOMA
  2. VELCADE [Suspect]
     Indication: MULTIPLE MYELOMA
  3. MELPHALAN [Suspect]
     Indication: MULTIPLE MYELOMA

REACTIONS (11)
  - Respiratory failure [Fatal]
  - Staphylococcal sepsis [Unknown]
  - Shock [Unknown]
  - Intervertebral discitis [Unknown]
  - Gastrointestinal haemorrhage [Unknown]
  - Haemorrhoids [Unknown]
  - Staphylococcal bacteraemia [Unknown]
  - Device related sepsis [None]
  - Haemorrhoidal haemorrhage [None]
  - Mental status changes [None]
  - General physical health deterioration [None]
